FAERS Safety Report 6735206-X (Version None)
Quarter: 2010Q2

REPORT INFORMATION
  Report Type: 
  Country: None (occurrence: None)
  Receive Date: 20100519
  Receipt Date: 20100519
  Transmission Date: 20101027
  Serious: No
  Sender: FDA-Public Use
  Company Number: None

PATIENT
  Age: 57 Year
  Sex: Female
  Weight: 64.8644 kg

DRUGS (1)
  1. OSMOPREP [Suspect]
     Dosage: TABLETS P.O. 32 TABS
     Route: 048
     Dates: start: 20100316, end: 20100316

REACTIONS (1)
  - RENAL FAILURE [None]
